FAERS Safety Report 4325678-2 (Version None)
Quarter: 2004Q1

REPORT INFORMATION
  Report Type: 
  Country: None (occurrence: None)
  Receive Date: 20040324
  Receipt Date: 20040315
  Transmission Date: 20041129
  Serious: Yes (Hospitalization)
  Sender: FDA-Public Use
  Company Number: FR_040303729

PATIENT
  Age: 49 Year
  Sex: Female
  Weight: 97 kg

DRUGS (6)
  1. ZYPREXA [Suspect]
     Indication: SCHIZOPHRENIA
     Dosage: 5 MG/1 DAY
     Dates: start: 20030415, end: 20040119
  2. MEPRONIZINE [Concomitant]
  3. NOCTRAN [Concomitant]
  4. TERCIAN (CYAMEMAZINE) [Concomitant]
  5. ATHYMIL (MIANSERIN HYDROCHLORIDE) [Concomitant]
  6. KENZEN (CANDESARTAN CILEXETIL) [Concomitant]

REACTIONS (3)
  - DIABETES MELLITUS [None]
  - PSYCHOTIC DISORDER [None]
  - PYELONEPHRITIS ACUTE [None]
